FAERS Safety Report 8051463-4 (Version None)
Quarter: 2012Q1

REPORT INFORMATION
  Report Type: 
  Country: None (occurrence: None)
  Receive Date: 20120117
  Receipt Date: 20120110
  Transmission Date: 20120608
  Serious: Yes (Other)
  Sender: FDA-Public Use
  Company Number: US-ASTRAZENECA-2012SE02204

PATIENT
  Age: 52 Year
  Sex: Female
  Weight: 99.8 kg

DRUGS (3)
  1. SEROQUEL [Suspect]
     Indication: BIPOLAR DISORDER
     Route: 048
  2. SEROQUEL [Suspect]
     Indication: PSYCHOTIC DISORDER
     Route: 048
  3. NORCO [Concomitant]

REACTIONS (7)
  - ADVERSE EVENT [None]
  - HAND FRACTURE [None]
  - DRUG DOSE OMISSION [None]
  - WRONG TECHNIQUE IN DRUG USAGE PROCESS [None]
  - HALLUCINATION [None]
  - PSYCHOTIC DISORDER [None]
  - PARANOIA [None]
